FAERS Safety Report 13439771 (Version 1)
Quarter: 2017Q2

REPORT INFORMATION
  Report Type: Spontaneous
  Country: SE (occurrence: SE)
  Receive Date: 20170413
  Receipt Date: 20170413
  Transmission Date: 20170830
  Serious: Yes (Hospitalization, Other)
  Sender: FDA-Public Use
  Company Number: SE-MYLANLABS-2017M1022429

PATIENT

DRUGS (6)
  1. CAMPRAL [Suspect]
     Active Substance: ACAMPROSATE CALCIUM
     Dosage: 3330 SINGELDOS
     Route: 048
     Dates: start: 20150508, end: 20150508
  2. NALTREXON VITAFLO [Suspect]
     Active Substance: NALTREXONE HYDROCHLORIDE
     Dosage: 500 SINGELDOS
     Route: 048
     Dates: start: 20150508, end: 20150508
  3. VOXRA [Concomitant]
     Active Substance: BUPROPION HYDROCHLORIDE
  4. VENLAFAXIN MYLAN 75 MG DEPOTKAPSEL, H?RD [Suspect]
     Active Substance: VENLAFAXINE HYDROCHLORIDE
     Dosage: 750 SINGELDOS
     Route: 048
     Dates: start: 20150508, end: 20150508
  5. GESTRINA [Concomitant]
  6. ANTABUS [Concomitant]
     Active Substance: DISULFIRAM

REACTIONS (2)
  - Toxicity to various agents [Recovered/Resolved]
  - Suicide attempt [Recovered/Resolved]

NARRATIVE: CASE EVENT DATE: 20150508
